FAERS Safety Report 7612056-3 (Version None)
Quarter: 2011Q3

REPORT INFORMATION
  Report Type: 
  Country: None (occurrence: None)
  Receive Date: 20110715
  Receipt Date: 20110712
  Transmission Date: 20111222
  Serious: Yes (Other)
  Sender: FDA-Public Use
  Company Number: US-ABBOTT-11P-163-0838168-00

PATIENT
  Age: 32 Year
  Sex: Female

DRUGS (2)
  1. COMBIVIR [Suspect]
     Indication: ANTIRETROVIRAL THERAPY
     Dosage: 2TABS/CAPS DAILY NOT TAKEN AT CONCEPTION
     Route: 048
     Dates: start: 20110513, end: 20110608
  2. KALETRA [Suspect]
     Indication: ANTIRETROVIRAL THERAPY
     Dosage: 4TABS/CAPS DAILY NOT TAKEN AT CONCEPTION
     Route: 048
     Dates: start: 20110513, end: 20110608

REACTIONS (1)
  - ABORTION INDUCED [None]
